FAERS Safety Report 6197952-9 (Version None)
Quarter: 2009Q2

REPORT INFORMATION
  Report Type: 
  Country: None (occurrence: None)
  Receive Date: 20090521
  Receipt Date: 20090513
  Transmission Date: 20091009
  Serious: Yes (Other)
  Sender: FDA-Public Use
  Company Number: B0571292A

PATIENT
  Sex: Male
  Weight: 30.4 kg

DRUGS (3)
  1. RELENZA [Suspect]
     Indication: INFLUENZA
     Dosage: 10MG TWICE PER DAY
     Route: 055
     Dates: start: 20090318, end: 20090320
  2. NIPOLAZIN [Suspect]
     Indication: COUGH
     Dosage: 3MG TWICE PER DAY
     Route: 048
     Dates: start: 20090318, end: 20090322
  3. ASVERIN [Concomitant]
     Indication: COUGH
     Route: 048
     Dates: start: 20090318, end: 20090322

REACTIONS (6)
  - ABNORMAL BEHAVIOUR [None]
  - AMNESIA [None]
  - EXPRESSIVE LANGUAGE DISORDER [None]
  - INSOMNIA [None]
  - RESTLESSNESS [None]
  - SPEECH DISORDER [None]
